FAERS Safety Report 6791277-6 (Version None)
Quarter: 2010Q2

REPORT INFORMATION
  Report Type: 
  Country: None (occurrence: None)
  Receive Date: 20100624
  Receipt Date: 20100614
  Transmission Date: 20101027
  Serious: Yes (Other)
  Sender: FDA-Public Use
  Company Number: US-ABBOTT-10P-163-0650904-00

PATIENT
  Sex: Male

DRUGS (4)
  1. LUPRON DEPOT [Suspect]
     Indication: DRUG USE FOR UNKNOWN INDICATION
     Dates: start: 20070101, end: 20081001
  2. LUPRON DEPOT [Suspect]
  3. ZOLADEX [Suspect]
     Indication: DRUG USE FOR UNKNOWN INDICATION
     Dates: end: 20081218
  4. ZOLADEX [Suspect]

REACTIONS (15)
  - ARTHRALGIA [None]
  - BONE DISORDER [None]
  - BONE NEOPLASM [None]
  - BONE PAIN [None]
  - DRUG INEFFECTIVE [None]
  - FATIGUE [None]
  - HOT FLUSH [None]
  - INCONTINENCE [None]
  - MEMORY IMPAIRMENT [None]
  - MUSCULOSKELETAL CHEST PAIN [None]
  - MYALGIA [None]
  - RADICAL PROSTATECTOMY [None]
  - RECTAL ABSCESS [None]
  - STAPHYLOCOCCAL INFECTION [None]
  - WEIGHT DECREASED [None]
